FAERS Safety Report 15330552 (Version 3)
Quarter: 2019Q4

REPORT INFORMATION
  Report Type: Report from Study
  Country: None (occurrence: US)
  Receive Date: 20180829
  Receipt Date: 20191022
  Transmission Date: 20200122
  Serious: Yes (Other)
  Sender: FDA-Public Use
  Company Number: US-ABBVIE-18K-163-2422788-00

PATIENT
  Sex: Female
  Weight: 88.53 kg

DRUGS (9)
  1. LEVOTHYROXINE. [Concomitant]
     Active Substance: LEVOTHYROXINE
     Indication: HYPOTHYROIDISM
  2. LISINOPRIL. [Concomitant]
     Active Substance: LISINOPRIL
     Indication: HYPERTENSION
  3. HUMIRA [Suspect]
     Active Substance: ADALIMUMAB
     Indication: RHEUMATOID ARTHRITIS
     Route: 058
     Dates: start: 2010, end: 2012
  4. METHOTREXATE. [Concomitant]
     Active Substance: METHOTREXATE
     Indication: RHEUMATOID ARTHRITIS
  5. LISINOPRIL. [Concomitant]
     Active Substance: LISINOPRIL
     Indication: FLUID RETENTION
  6. NAPROXEN. [Concomitant]
     Active Substance: NAPROXEN
     Indication: ANTIINFLAMMATORY THERAPY
  7. PREDNISONE. [Concomitant]
     Active Substance: PREDNISONE
     Indication: SLEEP DISORDER THERAPY
  8. PREDNISONE. [Concomitant]
     Active Substance: PREDNISONE
     Indication: RHEUMATOID ARTHRITIS
  9. HUMIRA [Suspect]
     Active Substance: ADALIMUMAB
     Route: 058
     Dates: end: 2017

REACTIONS (6)
  - Rheumatoid arthritis [Recovered/Resolved]
  - Shoulder operation [Recovering/Resolving]
  - Oropharyngeal pain [Recovering/Resolving]
  - Rotator cuff syndrome [Recovering/Resolving]
  - Breast cancer female [Recovered/Resolved]
  - Viral infection [Recovered/Resolved]

NARRATIVE: CASE EVENT DATE: 2010
